FAERS Safety Report 20968359 (Version 2)
Quarter: 2022Q3

REPORT INFORMATION
  Report Type: Spontaneous
  Country: US (occurrence: US)
  Receive Date: 20220616
  Receipt Date: 20220629
  Transmission Date: 20221027
  Serious: No
  Sender: FDA-Public Use
  Company Number: US-NOVARTISTESTPH-NVSC2022US138022

PATIENT
  Sex: Male

DRUGS (1)
  1. KETOCONAZOLE [Suspect]
     Active Substance: KETOCONAZOLE
     Indication: Product used for unknown indication
     Dosage: (60 GM CREAM)
     Route: 065

REACTIONS (4)
  - Rash [Not Recovered/Not Resolved]
  - Product packaging quantity issue [Unknown]
  - Product container issue [Unknown]
  - Product leakage [Unknown]
